FAERS Safety Report 4413006-3 (Version None)
Quarter: 2004Q3

REPORT INFORMATION
  Report Type: 
  Country: None (occurrence: None)
  Receive Date: 20040802
  Receipt Date: 20040428
  Transmission Date: 20050211
  Serious: No
  Sender: FDA-Public Use
  Company Number: US-GLAXOSMITHKLINE-A0508751A

PATIENT
  Age: 11 Month
  Sex: Male

DRUGS (2)
  1. ZANTAC [Suspect]
     Indication: ILL-DEFINED DISORDER
     Dosage: .5TSP TWICE PER DAY
     Route: 048
     Dates: start: 20040401
  2. NO CONCURRENT MEDICATION [Concomitant]

REACTIONS (3)
  - AGGRESSION [None]
  - ILL-DEFINED DISORDER [None]
  - SOMNOLENCE [None]
